FAERS Safety Report 18553947 (Version 23)
Quarter: 2024Q4

REPORT INFORMATION
  Report Type: Report from Study
  Country: US (occurrence: US)
  Receive Date: 20201127
  Receipt Date: 20241219
  Transmission Date: 20250115
  Serious: Yes (Hospitalization, Other)
  Sender: TAKEDA
  Company Number: US-TAKEDA-US202016162

PATIENT
  Age: 69 Year
  Sex: Female
  Weight: 78 kg

DRUGS (38)
  1. HUMAN IMMUNOGLOBULIN G [Suspect]
     Active Substance: HUMAN IMMUNOGLOBULIN G
     Indication: Congenital hypogammaglobulinaemia
     Dosage: 20 GRAM, Q2WEEKS
     Dates: start: 20170220
  2. HUMAN IMMUNOGLOBULIN G [Suspect]
     Active Substance: HUMAN IMMUNOGLOBULIN G
     Indication: Primary immunodeficiency syndrome
     Dosage: 20 GRAM, Q2WEEKS
     Dates: start: 20170221
  3. HUMAN IMMUNOGLOBULIN G [Suspect]
     Active Substance: HUMAN IMMUNOGLOBULIN G
     Indication: Selective IgG subclass deficiency
     Dosage: 10 GRAM, 1/WEEK
  4. HUMAN IMMUNOGLOBULIN G [Suspect]
     Active Substance: HUMAN IMMUNOGLOBULIN G
     Dosage: 20 GRAM, Q2WEEKS
  5. HUMAN IMMUNOGLOBULIN G [Suspect]
     Active Substance: HUMAN IMMUNOGLOBULIN G
     Dosage: 20 GRAM, Q2WEEKS
     Dates: start: 20181004
  6. HUMAN IMMUNOGLOBULIN G [Suspect]
     Active Substance: HUMAN IMMUNOGLOBULIN G
     Dosage: 10 GRAM, 1/WEEK
  7. GAMMAGARD LIQUID [Suspect]
     Active Substance: HUMAN IMMUNOGLOBULIN G
     Indication: Congenital hypogammaglobulinaemia
     Dosage: 10 GRAM, 1/WEEK
     Dates: start: 20180810
  8. COVID-19 VACCINE NOS [Suspect]
     Active Substance: COVID-19 VACCINE
     Indication: Product used for unknown indication
     Dosage: UNK
  9. DIPHENHYDRAMINE [Concomitant]
     Active Substance: DIPHENHYDRAMINE
     Dosage: UNK
  10. ATORVASTATIN CALCIUM [Concomitant]
     Active Substance: ATORVASTATIN CALCIUM
     Dosage: UNK
  11. RANOLAZINE [Concomitant]
     Active Substance: RANOLAZINE
     Dosage: UNK
  12. EPINEPHRINE [Concomitant]
     Active Substance: EPINEPHRINE
     Dosage: UNK
  13. LEVOTHYROXINE SODIUM [Concomitant]
     Active Substance: LEVOTHYROXINE SODIUM
     Dosage: UNK
  14. ONDANSETRON HYDROCHLORIDE [Concomitant]
     Active Substance: ONDANSETRON HYDROCHLORIDE
     Dosage: UNK
  15. TOPIRAMATE [Concomitant]
     Active Substance: TOPIRAMATE
     Dosage: UNK
  16. ACETAMINOPHEN [Concomitant]
     Active Substance: ACETAMINOPHEN
     Dosage: UNK
  17. VITAMIN D3 [Concomitant]
     Active Substance: CHOLECALCIFEROL
     Dosage: UNK
  18. LORAZEPAM [Concomitant]
     Active Substance: LORAZEPAM
     Dosage: UNK
  19. NITROGLYCERIN [Concomitant]
     Active Substance: NITROGLYCERIN
     Dosage: UNK
  20. SUMATRIPTAN SUCCINATE [Concomitant]
     Active Substance: SUMATRIPTAN SUCCINATE
     Dosage: UNK
  21. PROAIR HFA [Concomitant]
     Active Substance: ALBUTEROL SULFATE
     Dosage: UNK
  22. MONTELUKAST SODIUM [Concomitant]
     Active Substance: MONTELUKAST\MONTELUKAST SODIUM
     Dosage: UNK
  23. Lmx [Concomitant]
     Dosage: UNK
  24. DILTIAZEM [Concomitant]
     Active Substance: DILTIAZEM
     Dosage: UNK
  25. PREDNISOLONE [Concomitant]
     Active Substance: PREDNISOLONE
     Dosage: UNK
  26. OFLOXACIN [Concomitant]
     Active Substance: OFLOXACIN
     Dosage: UNK
  27. KETOROLAC [Concomitant]
     Active Substance: KETOROLAC TROMETHAMINE
     Dosage: UNK
  28. NASACORT [Concomitant]
     Active Substance: TRIAMCINOLONE ACETONIDE
     Dosage: UNK
  29. KETOCONAZOLE [Concomitant]
     Active Substance: KETOCONAZOLE
     Dosage: UNK
  30. INDOMETHACIN [Concomitant]
     Active Substance: INDOMETHACIN
     Dosage: UNK
  31. CETIRIZINE [Concomitant]
     Active Substance: CETIRIZINE HYDROCHLORIDE
     Indication: Product used for unknown indication
     Dosage: UNK
  32. DESONIDE [Concomitant]
     Active Substance: DESONIDE
     Dosage: UNK
  33. MECLIZINE [Concomitant]
     Active Substance: MECLIZINE HYDROCHLORIDE
     Dosage: UNK
  34. TROMETHAMINE [Concomitant]
     Active Substance: TROMETHAMINE
     Dosage: UNK
  35. BROMFENAC;PREDNISOLONE [Concomitant]
     Dosage: UNK
  36. DIPHENHYDRAMINE HYDROCHLORIDE [Concomitant]
     Active Substance: DIPHENHYDRAMINE HYDROCHLORIDE
     Dosage: UNK
  37. ONDANSETRON [Concomitant]
     Active Substance: ONDANSETRON
     Dosage: UNK
  38. MECLIZINE HYDROCHLORIDE [Concomitant]
     Active Substance: MECLIZINE HYDROCHLORIDE
     Dosage: UNK

REACTIONS (30)
  - Hand fracture [Unknown]
  - Psoriatic arthropathy [Not Recovered/Not Resolved]
  - Sjogren^s syndrome [Unknown]
  - Pneumonia [Unknown]
  - Renal impairment [Unknown]
  - Lactose intolerance [Unknown]
  - Eyelid infection [Unknown]
  - Multiple allergies [Unknown]
  - Smoke sensitivity [Unknown]
  - Psoriasis [Not Recovered/Not Resolved]
  - Arthritis [Unknown]
  - Erythema migrans [Unknown]
  - Fungal infection [Unknown]
  - Urinary tract infection [Unknown]
  - Skin infection [Unknown]
  - Gastrointestinal inflammation [Unknown]
  - Eye infection [Unknown]
  - Seasonal allergy [Unknown]
  - Renal disorder [Unknown]
  - Asthma [Unknown]
  - Device malfunction [Unknown]
  - Inappropriate schedule of product administration [Unknown]
  - Factor V Leiden mutation [Unknown]
  - Product use in unapproved indication [Unknown]
  - COVID-19 [Unknown]
  - Phlebitis [Unknown]
  - Infusion site reaction [Unknown]
  - Influenza like illness [Unknown]
  - Infusion site pruritus [Unknown]
  - Infusion site erythema [Recovered/Resolved]

NARRATIVE: CASE EVENT DATE: 20210521
